FAERS Safety Report 25847369 (Version 1)
Quarter: 2025Q3

REPORT INFORMATION
  Report Type: Spontaneous
  Country: US (occurrence: None)
  Receive Date: 20250923
  Receipt Date: 20250923
  Transmission Date: 20251021
  Serious: Yes (Hospitalization)
  Sender: FDA-CTU
  Company Number: None

PATIENT
  Age: 68 Year
  Sex: Female

DRUGS (3)
  1. YESINTEK [Suspect]
     Active Substance: USTEKINUMAB-KFCE
     Indication: Crohn^s disease
     Route: 058
     Dates: start: 20250715
  2. YESINTEK [Suspect]
     Active Substance: USTEKINUMAB-KFCE
     Indication: Intestinal obstruction
  3. STELARA [Concomitant]
     Active Substance: USTEKINUMAB

REACTIONS (2)
  - Nausea [None]
  - Crohn^s disease [None]

NARRATIVE: CASE EVENT DATE: 20250824
